FAERS Safety Report 9006925 (Version 1)
Quarter: 2013Q1

REPORT INFORMATION
  Report Type: Spontaneous
  Country: JP (occurrence: JP)
  Receive Date: 20130110
  Receipt Date: 20130110
  Transmission Date: 20140127
  Serious: Yes (Other)
  Sender: FDA-Public Use
  Company Number: JP-TEVA-378587ISR

PATIENT
  Age: 56 Year
  Sex: Female

DRUGS (12)
  1. LEVOFLOXACIN [Suspect]
     Indication: TUBERCULOSIS
     Route: 065
     Dates: start: 20100604
  2. LEVOFLOXACIN [Suspect]
     Dates: start: 20120809
  3. SULFASALAZINE [Suspect]
     Indication: RHEUMATOID ARTHRITIS
     Route: 065
     Dates: start: 20100609, end: 20100726
  4. SULFASALAZINE [Suspect]
     Dates: start: 20120814
  5. RIFAMPICIN [Suspect]
     Indication: TUBERCULOSIS
     Route: 065
     Dates: start: 20100803
  6. RIFAMPICIN [Suspect]
     Dates: start: 20100823, end: 20100904
  7. STREPTOMYCIN [Suspect]
     Indication: TUBERCULOSIS
     Route: 065
     Dates: start: 20100604
  8. STREPTOMYCIN [Suspect]
     Dates: start: 20100809
  9. ETHAMBUTOL [Suspect]
     Indication: TUBERCULOSIS
     Route: 065
     Dates: start: 20100604
  10. ETHAMBUTOL [Suspect]
     Dates: start: 20100809
  11. ISONIAZID [Suspect]
     Indication: TUBERCULOSIS
     Dates: start: 20100908
  12. METHOTREXATE [Suspect]
     Indication: RHEUMATOID ARTHRITIS
     Route: 065
     Dates: start: 200903, end: 20100609

REACTIONS (6)
  - Drug reaction with eosinophilia and systemic symptoms [Recovering/Resolving]
  - Drug hypersensitivity [Recovering/Resolving]
  - Interstitial lung disease [Unknown]
  - Hepatic enzyme increased [Unknown]
  - Eosinophil count increased [Unknown]
  - Pyrexia [Unknown]
